FAERS Safety Report 9429177 (Version 1)
Quarter: 2013Q3

REPORT INFORMATION
  Report Type: Spontaneous
  Country: US (occurrence: US)
  Receive Date: 20130730
  Receipt Date: 20130730
  Transmission Date: 20140515
  Serious: Yes (Death)
  Sender: FDA-Public Use
  Company Number: US-CELGENEUS-163-20785-13063616

PATIENT
  Sex: Female

DRUGS (1)
  1. THALOMID [Suspect]
     Indication: IRON DEFICIENCY ANAEMIA
     Dosage: 100 MILLIGRAM
     Route: 048
     Dates: start: 20130320

REACTIONS (2)
  - Coronary artery disease [Fatal]
  - Renal failure chronic [Fatal]
